FAERS Safety Report 9547957 (Version 1)
Quarter: 2013Q3

REPORT INFORMATION
  Report Type: Spontaneous
  Country: JP (occurrence: None)
  Receive Date: 20130920
  Receipt Date: 20130920
  Transmission Date: 20140515
  Serious: Yes (Hospitalization)
  Sender: FDA-Public Use
  Company Number: IMP_06821_2013

PATIENT
  Age: 28 Year
  Sex: Male

DRUGS (1)
  1. CABERGOLINE [Suspect]
     Indication: PROLACTINOMA
     Dosage: (0.25MG WEEKLY) ([0.125MG EVERY 2 WEEKS, INCREASING DOSES UP TO 9MG WEEKLY])(UNTIL NOT CONTINUING)

REACTIONS (2)
  - Pneumocephalus [None]
  - Delirium [None]
